FAERS Safety Report 11850083 (Version 2)
Quarter: 2019Q2

REPORT INFORMATION
  Report Type: Spontaneous
  Country: US (occurrence: US)
  Receive Date: 20151218
  Receipt Date: 20190614
  Transmission Date: 20190711
  Serious: No
  Sender: FDA-Public Use
  Company Number: US-JNJFOC-20151206604

PATIENT
  Sex: Male

DRUGS (30)
  1. RISPERDAL [Suspect]
     Active Substance: RISPERIDONE
     Indication: IMPULSE-CONTROL DISORDER
     Route: 048
     Dates: start: 20010816, end: 20020702
  2. RISPERDAL [Suspect]
     Active Substance: RISPERIDONE
     Indication: BEHAVIOUR DISORDER
     Route: 048
     Dates: end: 2005
  3. RISPERDAL [Suspect]
     Active Substance: RISPERIDONE
     Indication: AGGRESSION
     Route: 048
     Dates: end: 2005
  4. RISPERDAL [Suspect]
     Active Substance: RISPERIDONE
     Indication: ATTENTION DEFICIT/HYPERACTIVITY DISORDER
     Route: 048
     Dates: start: 19980317
  5. RISPERDAL [Suspect]
     Active Substance: RISPERIDONE
     Indication: IMPULSE-CONTROL DISORDER
     Route: 048
     Dates: start: 19970604, end: 20001130
  6. RISPERDAL [Suspect]
     Active Substance: RISPERIDONE
     Indication: IMPULSE-CONTROL DISORDER
     Route: 048
     Dates: start: 19980317
  7. RISPERDAL [Suspect]
     Active Substance: RISPERIDONE
     Indication: OPPOSITIONAL DEFIANT DISORDER
     Route: 048
     Dates: end: 2005
  8. RISPERDAL [Suspect]
     Active Substance: RISPERIDONE
     Indication: BEHAVIOUR DISORDER
     Route: 048
     Dates: start: 19981016
  9. RISPERDAL [Suspect]
     Active Substance: RISPERIDONE
     Indication: OPPOSITIONAL DEFIANT DISORDER
     Route: 048
     Dates: start: 19981016
  10. RISPERDAL [Suspect]
     Active Substance: RISPERIDONE
     Indication: BEHAVIOUR DISORDER
     Route: 048
     Dates: start: 19970604, end: 20001130
  11. RISPERDAL [Suspect]
     Active Substance: RISPERIDONE
     Indication: AGGRESSION
     Route: 048
     Dates: start: 20010816, end: 20020702
  12. RISPERDAL [Suspect]
     Active Substance: RISPERIDONE
     Indication: ATTENTION DEFICIT/HYPERACTIVITY DISORDER
     Route: 048
     Dates: start: 19980611, end: 19980721
  13. RISPERDAL [Suspect]
     Active Substance: RISPERIDONE
     Indication: IMPULSE-CONTROL DISORDER
     Route: 048
     Dates: start: 19980611, end: 19980721
  14. RISPERDAL [Suspect]
     Active Substance: RISPERIDONE
     Indication: BEHAVIOUR DISORDER
     Route: 048
     Dates: start: 19980611, end: 19980721
  15. RISPERDAL [Suspect]
     Active Substance: RISPERIDONE
     Indication: BEHAVIOUR DISORDER
     Route: 048
     Dates: start: 20010816, end: 20020702
  16. RISPERDAL [Suspect]
     Active Substance: RISPERIDONE
     Indication: AGGRESSION
     Route: 048
     Dates: start: 19981016
  17. RISPERDAL [Suspect]
     Active Substance: RISPERIDONE
     Indication: AGGRESSION
     Route: 048
     Dates: start: 19980317
  18. RISPERDAL [Suspect]
     Active Substance: RISPERIDONE
     Indication: ATTENTION DEFICIT/HYPERACTIVITY DISORDER
     Route: 048
     Dates: start: 20010816, end: 20020702
  19. RISPERDAL [Suspect]
     Active Substance: RISPERIDONE
     Indication: IMPULSE-CONTROL DISORDER
     Route: 048
     Dates: start: 19981016
  20. RISPERDAL [Suspect]
     Active Substance: RISPERIDONE
     Indication: IMPULSE-CONTROL DISORDER
     Route: 048
     Dates: end: 2005
  21. RISPERDAL [Suspect]
     Active Substance: RISPERIDONE
     Indication: OPPOSITIONAL DEFIANT DISORDER
     Route: 048
     Dates: start: 19980611, end: 19980721
  22. RISPERDAL [Suspect]
     Active Substance: RISPERIDONE
     Indication: OPPOSITIONAL DEFIANT DISORDER
     Route: 048
     Dates: start: 20010816, end: 20020702
  23. RISPERDAL [Suspect]
     Active Substance: RISPERIDONE
     Indication: AGGRESSION
     Route: 048
     Dates: start: 19980611, end: 19980721
  24. RISPERDAL [Suspect]
     Active Substance: RISPERIDONE
     Indication: ATTENTION DEFICIT/HYPERACTIVITY DISORDER
     Route: 048
     Dates: start: 19970604, end: 20001130
  25. RISPERDAL [Suspect]
     Active Substance: RISPERIDONE
     Indication: AGGRESSION
     Route: 048
     Dates: start: 19970604, end: 20001130
  26. RISPERDAL [Suspect]
     Active Substance: RISPERIDONE
     Indication: ATTENTION DEFICIT/HYPERACTIVITY DISORDER
     Route: 048
     Dates: start: 19981016
  27. RISPERDAL [Suspect]
     Active Substance: RISPERIDONE
     Indication: ATTENTION DEFICIT/HYPERACTIVITY DISORDER
     Route: 048
     Dates: end: 2005
  28. RISPERDAL [Suspect]
     Active Substance: RISPERIDONE
     Indication: OPPOSITIONAL DEFIANT DISORDER
     Route: 048
     Dates: start: 19980317
  29. RISPERDAL [Suspect]
     Active Substance: RISPERIDONE
     Indication: OPPOSITIONAL DEFIANT DISORDER
     Route: 048
     Dates: start: 19970604, end: 20001130
  30. RISPERDAL [Suspect]
     Active Substance: RISPERIDONE
     Indication: BEHAVIOUR DISORDER
     Route: 048
     Dates: start: 19980317

REACTIONS (2)
  - Weight increased [Unknown]
  - Gynaecomastia [Unknown]

NARRATIVE: CASE EVENT DATE: 2003
